FAERS Safety Report 24239764 (Version 1)
Quarter: 2024Q3

REPORT INFORMATION
  Report Type: Spontaneous
  Country: US (occurrence: US)
  Receive Date: 20240822
  Receipt Date: 20240822
  Transmission Date: 20241016
  Serious: No
  Sender: AVADEL CNS PHARMA
  Company Number: US-AVADEL CNS PHARMACEUTICALS, LLC-2024AVA01244

PATIENT
  Sex: Male

DRUGS (1)
  1. LUMRYZ [Suspect]
     Active Substance: SODIUM OXYBATE
     Dosage: UNK

REACTIONS (5)
  - Insomnia [Recovered/Resolved]
  - Fatigue [Recovered/Resolved]
  - Cataplexy [Recovering/Resolving]
  - Nausea [Recovered/Resolved]
  - Drug ineffective [Recovered/Resolved]
